FAERS Safety Report 14635030 (Version 2)
Quarter: 2019Q4

REPORT INFORMATION
  Report Type: Spontaneous
  Country: US (occurrence: US)
  Receive Date: 20180314
  Receipt Date: 20191010
  Transmission Date: 20200122
  Serious: Yes (Death, Other)
  Sender: FDA-Public Use
  Company Number: US-ASTRAZENECA-2018SE30409

PATIENT
  Sex: Male

DRUGS (31)
  1. QUETIPINE [Concomitant]
     Active Substance: QUETIAPINE
  2. GENERLAC [Concomitant]
     Active Substance: LACTULOSE
  3. SENSIPAR [Concomitant]
     Active Substance: CINACALCET HYDROCHLORIDE
  4. OXYCODONE [Concomitant]
     Active Substance: OXYCODONE
  5. LISINOPRIL. [Concomitant]
     Active Substance: LISINOPRIL
  6. OLANZAPINE. [Concomitant]
     Active Substance: OLANZAPINE
  7. VENTOLIN [Concomitant]
     Active Substance: ALBUTEROL SULFATE
  8. FOSRENOL [Concomitant]
     Active Substance: LANTHANUM CARBONATE
  9. MOMETASONE [Concomitant]
     Active Substance: MOMETASONE
  10. NEXIUM [Suspect]
     Active Substance: ESOMEPRAZOLE MAGNESIUM
     Route: 048
     Dates: start: 2009, end: 2014
  11. ENALAPRIL [Concomitant]
     Active Substance: ENALAPRIL
  12. FLUTICASONE. [Concomitant]
     Active Substance: FLUTICASONE
  13. POLYETH GLYCOL [Concomitant]
  14. SEVELAMER [Concomitant]
     Active Substance: SEVELAMER
  15. CIPROFLOXACIN. [Concomitant]
     Active Substance: CIPROFLOXACIN
  16. TACROLIMUS. [Concomitant]
     Active Substance: TACROLIMUS
  17. CABERGOLINE. [Concomitant]
     Active Substance: CABERGOLINE
  18. PROAIR HFA [Concomitant]
     Active Substance: ALBUTEROL SULFATE
  19. ASPIRIN. [Concomitant]
     Active Substance: ASPIRIN
  20. ATORVASTATIN [Concomitant]
     Active Substance: ATORVASTATIN
  21. AZITHROMYCIN ANHYDROUS. [Concomitant]
     Active Substance: AZITHROMYCIN ANHYDROUS
  22. BENZONATATE. [Concomitant]
     Active Substance: BENZONATATE
  23. CLOBETASOL [Concomitant]
     Active Substance: CLOBETASOL
  24. FOLIC ACID. [Concomitant]
     Active Substance: FOLIC ACID
  25. CARVEDILOL. [Concomitant]
     Active Substance: CARVEDILOL
  26. DOXYCYCLINE MONOHYDRATE [Concomitant]
     Active Substance: DOXYCYCLINE
  27. TYLENOL [Concomitant]
     Active Substance: ACETAMINOPHEN
  28. NEXIUM [Suspect]
     Active Substance: ESOMEPRAZOLE MAGNESIUM
     Dosage: 40 MG
     Route: 048
  29. CARVEDILOL. [Concomitant]
     Active Substance: CARVEDILOL
  30. HYDROCODONE BITARTRATE AND ACETAMINOPHEN [Concomitant]
     Active Substance: ACETAMINOPHEN\HYDROCODONE BITARTRATE
  31. CLOZAPINE. [Concomitant]
     Active Substance: CLOZAPINE

REACTIONS (3)
  - Death [Fatal]
  - End stage renal disease [Unknown]
  - Renal failure [Recovered/Resolved]
